FAERS Safety Report 20309147 (Version 1)
Quarter: 2022Q1

REPORT INFORMATION
  Report Type: Spontaneous
  Country: US (occurrence: None)
  Receive Date: 20220107
  Receipt Date: 20220107
  Transmission Date: 20220424
  Serious: Yes (Hospitalization)
  Sender: FDA-Public Use
  Company Number: None

PATIENT
  Sex: Male
  Weight: 84.6 kg

DRUGS (3)
  1. CARBOPLATIN [Suspect]
     Active Substance: CARBOPLATIN
     Indication: Product used for unknown indication
     Dates: end: 20211217
  2. ETOPOSIDE [Suspect]
     Active Substance: ETOPOSIDE
     Dates: end: 20211217
  3. FILGRASTIM [Suspect]
     Active Substance: FILGRASTIM
     Dates: end: 20211225

REACTIONS (5)
  - Body temperature increased [None]
  - Pancytopenia [None]
  - Platelet transfusion [None]
  - Transfusion [None]
  - Haemoglobin [None]

NARRATIVE: CASE EVENT DATE: 20211225
